FAERS Safety Report 20221213 (Version 1)
Quarter: 2021Q4

REPORT INFORMATION
  Report Type: Spontaneous
  Country: DE (occurrence: DE)
  Receive Date: 20211223
  Receipt Date: 20211223
  Transmission Date: 20220303
  Serious: Yes (Other)
  Sender: FDA-Public Use
  Company Number: None

PATIENT
  Age: 47 Year
  Sex: Female

DRUGS (3)
  1. COPAXONE [Suspect]
     Active Substance: GLATIRAMER ACETATE
     Indication: Multiple sclerosis
     Dosage: 3X / WEEK,, COPAXONE 40 MG / ML SOLUTION FOR INJECTION IN A PRE-FILLED SYRINGE, 3 DF
     Route: 058
     Dates: start: 2016, end: 202109
  2. OPIPRAMOL [Concomitant]
     Active Substance: OPIPRAMOL
     Dosage: .5 DOSAGE FORMS DAILY; 0.5 DF AT BEDTIME
  3. IBUPROFEN [Concomitant]
     Active Substance: IBUPROFEN
     Dosage: NOW AND THEN IF NECESSARY

REACTIONS (1)
  - Corneal opacity [Not Recovered/Not Resolved]

NARRATIVE: CASE EVENT DATE: 20211001
